FAERS Safety Report 14490667 (Version 3)
Quarter: 2018Q1

REPORT INFORMATION
  Report Type: Report from Study
  Country: CA (occurrence: CA)
  Receive Date: 20180206
  Receipt Date: 20180330
  Transmission Date: 20180509
  Serious: Yes (Hospitalization, Other)
  Sender: FDA-Public Use
  Company Number: CA-AMGEN-CANSL2018013684

PATIENT
  Age: 47 Year
  Sex: Female

DRUGS (1)
  1. XGEVA [Suspect]
     Active Substance: DENOSUMAB
     Indication: BREAST CANCER
     Dosage: 120 MG (1.7 ML), UNK
     Route: 065
     Dates: start: 20171127

REACTIONS (4)
  - Palpitations [Unknown]
  - Surgery [Unknown]
  - Upper limb fracture [Unknown]
  - Malaise [Unknown]
